FAERS Safety Report 12302155 (Version 2)
Quarter: 2016Q2

REPORT INFORMATION
  Report Type: Report from Study
  Country: CA (occurrence: CA)
  Receive Date: 20160425
  Receipt Date: 20160606
  Transmission Date: 20160815
  Serious: Yes (Death)
  Sender: FDA-Public Use
  Company Number: CA-HLSUS-2016-CA-000037

PATIENT
  Sex: Male
  Weight: 180 kg

DRUGS (1)
  1. CLOZARIL [Suspect]
     Active Substance: CLOZAPINE
     Dosage: 25 MG TID
     Route: 048
     Dates: start: 20150201, end: 20160416

REACTIONS (3)
  - Asthenia [None]
  - Parkinson^s disease [Fatal]
  - Disease complication [None]
